FAERS Safety Report 12180808 (Version 1)
Quarter: 2016Q1

REPORT INFORMATION
  Report Type: Spontaneous
  Country: US (occurrence: US)
  Receive Date: 20160315
  Receipt Date: 20160315
  Transmission Date: 20160526
  Serious: No
  Sender: FDA-Public Use
  Company Number: US-PFIZER INC-2015376361

PATIENT
  Age: 71 Year
  Sex: Female
  Weight: 54 kg

DRUGS (2)
  1. CELEBREX [Suspect]
     Active Substance: CELECOXIB
     Indication: PAIN
     Dosage: 200 MG, DAILY
     Route: 048
     Dates: start: 20150831, end: 20150831
  2. CELEBREX [Suspect]
     Active Substance: CELECOXIB
     Dosage: 200 MG, DAILY
     Route: 048
     Dates: start: 20151101, end: 20151102

REACTIONS (1)
  - Drug ineffective [Not Recovered/Not Resolved]
